FAERS Safety Report 25343770 (Version 1)
Quarter: 2025Q2

REPORT INFORMATION
  Report Type: Spontaneous
  Country: FR (occurrence: FR)
  Receive Date: 20250521
  Receipt Date: 20250521
  Transmission Date: 20250717
  Serious: Yes (Other)
  Sender: PURDUE
  Company Number: FR-ETHYPHARM-2025001198

PATIENT
  Sex: Male

DRUGS (1)
  1. MORPHINE SULFATE [Suspect]
     Active Substance: MORPHINE SULFATE
     Indication: Product used for unknown indication
     Route: 045

REACTIONS (6)
  - Intentional product use issue [Unknown]
  - Drug abuse [Unknown]
  - Feeling of relaxation [Unknown]
  - Energy increased [Unknown]
  - Disinhibition [Unknown]
  - Anger [Unknown]
